FAERS Safety Report 11993689 (Version 3)
Quarter: 2016Q2

REPORT INFORMATION
  Report Type: Spontaneous
  Country: US (occurrence: US)
  Receive Date: 20160203
  Receipt Date: 20160525
  Transmission Date: 20160815
  Serious: Yes (Death, Hospitalization, Disabling, Other)
  Sender: FDA-Public Use
  Company Number: US-009507513-1602USA001343

PATIENT
  Sex: Female
  Weight: 74.83 kg

DRUGS (1)
  1. JANUVIA [Suspect]
     Active Substance: SITAGLIPTIN PHOSPHATE
     Indication: TYPE 2 DIABETES MELLITUS
     Dosage: 100 MG, QD
     Route: 048
     Dates: start: 20130121, end: 20131113

REACTIONS (48)
  - Disturbance in attention [Unknown]
  - Carpal tunnel syndrome [Unknown]
  - Cholelithiasis [Unknown]
  - Hypertension [Unknown]
  - Pancreatic carcinoma metastatic [Fatal]
  - Spinal fusion surgery [Unknown]
  - Breath sounds abnormal [Unknown]
  - Confusional state [Unknown]
  - Back pain [Unknown]
  - Memory impairment [Unknown]
  - Osteoarthritis [Unknown]
  - Shoulder operation [Unknown]
  - Fatigue [Unknown]
  - Oedema [Unknown]
  - Pancreatitis [Unknown]
  - Diverticulum [Unknown]
  - Anxiety disorder [Unknown]
  - Arthritis [Unknown]
  - Sleep disorder [Unknown]
  - Abdominal pain upper [Unknown]
  - Asthenia [Recovered/Resolved]
  - Dehydration [Recovered/Resolved]
  - Pericardial effusion [Unknown]
  - Acute prerenal failure [Unknown]
  - Renal failure [Unknown]
  - Neck pain [Unknown]
  - Appetite disorder [Unknown]
  - Hypercholesterolaemia [Unknown]
  - Dyspnoea [Unknown]
  - Gastrointestinal sounds abnormal [Unknown]
  - Hypothyroidism [Unknown]
  - Chronic obstructive pulmonary disease [Not Recovered/Not Resolved]
  - Leukocytosis [Unknown]
  - Cataract operation [Unknown]
  - Atrial fibrillation [Unknown]
  - Renal tubular necrosis [Unknown]
  - Respiratory failure [Recovered/Resolved]
  - Oedema peripheral [Unknown]
  - Hyponatraemia [Unknown]
  - Diarrhoea [Recovered/Resolved]
  - Change of bowel habit [Unknown]
  - Knee operation [Unknown]
  - Arthralgia [Unknown]
  - Pyrexia [Unknown]
  - Hypokalaemia [Unknown]
  - Hip arthroplasty [Unknown]
  - Cardiac tamponade [Unknown]
  - Fibromyalgia [Unknown]

NARRATIVE: CASE EVENT DATE: 201307
